FAERS Safety Report 6349888-8 (Version None)
Quarter: 2009Q3

REPORT INFORMATION
  Report Type: 
  Country: None (occurrence: None)
  Receive Date: 20090911
  Receipt Date: 20090902
  Transmission Date: 20100115
  Serious: Yes (Hospitalization, Other)
  Sender: FDA-Public Use
  Company Number: US-ABBOTT-09P-163-0595404-00

PATIENT
  Sex: Female
  Weight: 43.13 kg

DRUGS (9)
  1. HUMIRA [Suspect]
     Indication: CROHN'S DISEASE
     Route: 058
     Dates: start: 20090902, end: 20090902
  2. HUMIRA [Suspect]
     Route: 058
     Dates: start: 20090904, end: 20090904
  3. HUMIRA [Suspect]
     Route: 058
  4. HUMIRA [Suspect]
  5. COREG [Concomitant]
     Indication: CARDIAC FAILURE CONGESTIVE
  6. COREG [Concomitant]
     Indication: CARDIOMEGALY
  7. FLAGYL [Concomitant]
     Indication: FISTULA
  8. PREDNISONE [Concomitant]
     Indication: CROHN'S DISEASE
  9. VITAMIN B-12 [Concomitant]
     Indication: DECREASED APPETITE
     Dates: start: 20090904, end: 20090904

REACTIONS (7)
  - HYPERHIDROSIS [None]
  - INJECTION SITE IRRITATION [None]
  - INJECTION SITE PAIN [None]
  - LOSS OF CONSCIOUSNESS [None]
  - NAUSEA [None]
  - URINARY INCONTINENCE [None]
  - VOMITING [None]
